FAERS Safety Report 10218315 (Version 1)
Quarter: 2014Q2

REPORT INFORMATION
  Report Type: Spontaneous
  Country: DK (occurrence: DK)
  Receive Date: 20140605
  Receipt Date: 20140605
  Transmission Date: 20141212
  Serious: Yes (Hospitalization)
  Sender: FDA-Public Use
  Company Number: DK-ROCHE-1408114

PATIENT
  Age: 85 Year
  Sex: Female

DRUGS (16)
  1. TAMIFLU [Suspect]
     Indication: INFLUENZA
     Route: 048
     Dates: start: 20140220
  2. ARANESP [Concomitant]
     Indication: ANAEMIA
     Route: 065
  3. DIGOXIN ^DAK^ [Concomitant]
     Indication: CARDIAC DISORDER
     Route: 065
  4. DIURAL (DENMARK) [Concomitant]
     Indication: DIURETIC THERAPY
     Route: 065
  5. FRAGMIN [Concomitant]
     Indication: ANTICOAGULANT THERAPY
     Route: 065
  6. IMOCLONE [Concomitant]
     Indication: INSOMNIA
     Route: 065
  7. INSULATARD [Concomitant]
     Indication: TYPE 1 DIABETES MELLITUS
     Route: 065
  8. MAREVAN [Concomitant]
     Indication: ANTICOAGULANT THERAPY
     Route: 065
  9. METOPROLOL SUCCINATE [Concomitant]
     Indication: HYPERTENSION
     Route: 065
  10. NOVORAPID [Concomitant]
     Indication: TYPE 1 DIABETES MELLITUS
     Route: 065
  11. PANTOPRAZOL [Concomitant]
     Indication: GASTROOESOPHAGEAL REFLUX DISEASE
     Route: 065
  12. PINEX (DENMARK) [Concomitant]
     Indication: PAIN
     Route: 065
  13. PREDNISOLONE ^DAK^ [Concomitant]
     Route: 065
  14. REVOLADE [Concomitant]
     Indication: THROMBOCYTOPENIA
     Route: 065
  15. ZARZIO [Concomitant]
     Indication: COLONY STIMULATING FACTOR THERAPY
     Route: 065
  16. ALLOPURINOL [Concomitant]
     Route: 065

REACTIONS (2)
  - Coombs direct test positive [Not Recovered/Not Resolved]
  - Haemolysis [Not Recovered/Not Resolved]
